FAERS Safety Report 8032994-X (Version None)
Quarter: 2011Q4

REPORT INFORMATION
  Report Type: 
  Country: None (occurrence: None)
  Receive Date: 20111223
  Receipt Date: 20111215
  Transmission Date: 20120403
  Serious: Yes (Death, Hospitalization)
  Sender: FDA-Public Use
  Company Number: 2011SP053960

PATIENT
  Age: 65 Year
  Sex: Female

DRUGS (14)
  1. SOLIAN [Concomitant]
  2. VALPROATE SODIUM [Concomitant]
  3. TOPAMAX [Concomitant]
  4. ZYPREXA [Concomitant]
  5. SYCREST  (ASENAPINE  /05706901/) [Suspect]
     Indication: PRODUCT USED FOR UNKNOWN INDICATION
     Dosage: 10 MG;QD 20 MG;QD
     Dates: start: 20111111, end: 20111111
  6. SYCREST  (ASENAPINE  /05706901/) [Suspect]
     Indication: PRODUCT USED FOR UNKNOWN INDICATION
     Dosage: 10 MG;QD 20 MG;QD
     Dates: start: 20111113, end: 20111114
  7. D VITAMIN [Concomitant]
  8. ZYPREXA [Concomitant]
  9. CISORDINOL ACUTARD [Concomitant]
  10. UNIKALK FORTE WITH D-VITAMIN [Concomitant]
  11. UNIKALK FORTE WITH D-VITAMIN [Concomitant]
  12. LAMICTAL [Concomitant]
  13. SEROQUEL XR [Concomitant]
  14. SEROQUEL [Concomitant]

REACTIONS (15)
  - MANIA [None]
  - ENERGY INCREASED [None]
  - BLOOD CREATININE INCREASED [None]
  - SOMNOLENCE [None]
  - INSOMNIA [None]
  - AGGRESSION [None]
  - DEPRESSED MOOD [None]
  - AGITATION [None]
  - ILEUS [None]
  - CARDIAC ARREST [None]
  - MALAISE [None]
  - ANXIETY [None]
  - STRESS [None]
  - ABDOMINAL DISTENSION [None]
  - BILIARY TRACT DISORDER [None]
